FAERS Safety Report 25222803 (Version 2)
Quarter: 2025Q3

REPORT INFORMATION
  Report Type: Spontaneous
  Country: EU (occurrence: EU)
  Receive Date: 20250422
  Receipt Date: 20250809
  Transmission Date: 20251020
  Serious: Yes (Other)
  Sender: ALEXION PHARMACEUTICALS
  Company Number: None

PATIENT
  Age: 89 Year
  Sex: Female

DRUGS (14)
  1. DAPAGLIFLOZIN [Suspect]
     Active Substance: DAPAGLIFLOZIN
     Indication: Type 3 diabetes mellitus
     Dosage: 1X1
  2. GLICLAZIDE [Suspect]
     Active Substance: GLICLAZIDE
     Indication: Type 3 diabetes mellitus
  3. SINTROM [Suspect]
     Active Substance: ACENOCOUMAROL
     Indication: Coronary artery bypass
  4. SINTROM [Suspect]
     Active Substance: ACENOCOUMAROL
     Indication: Heart valve replacement
  5. Bionoliprel [Concomitant]
     Indication: Hypertension
     Dosage: STRENGHT: 5 MG/1,25 MGDOSE: 1 TBL IN THE MORNING
  6. Bionoliprel [Concomitant]
     Indication: Coronary artery bypass
  7. Coryol [Concomitant]
     Indication: Hypertension
     Dosage: 1 TBL IN THE MORNING
  8. Coryol [Concomitant]
     Indication: Coronary artery bypass
  9. EUTHYROX [Concomitant]
     Active Substance: LEVOTHYROXINE SODIUM
     Indication: Hypothyroidism
     Dosage: 1X1
  10. PANTOPRAZOLE SODIUM [Concomitant]
     Active Substance: PANTOPRAZOLE SODIUM
     Indication: Prophylaxis
     Dosage: 2X1
  11. ROSUVASTATIN CALCIUM [Concomitant]
     Active Substance: ROSUVASTATIN CALCIUM
     Indication: Cerebrovascular accident
     Dosage: 1 TBL IN THE EVENING
  12. ROSUVASTATIN CALCIUM [Concomitant]
     Active Substance: ROSUVASTATIN CALCIUM
     Indication: Coronary artery bypass
  13. LACTULOSE [Concomitant]
     Active Substance: LACTULOSE
     Indication: Constipation
  14. METFORMIN HYDROCHLORIDE [Concomitant]
     Active Substance: METFORMIN HYDROCHLORIDE
     Indication: Type 2 diabetes mellitus
     Dosage: 2X1

REACTIONS (2)
  - Hypoglycaemia [Recovered/Resolved]
  - International normalised ratio increased [Recovered/Resolved]

NARRATIVE: CASE EVENT DATE: 20250407
